FAERS Safety Report 9496775 (Version 1)
Quarter: 2013Q3

REPORT INFORMATION
  Report Type: Spontaneous
  Country: CN (occurrence: CN)
  Receive Date: 20130904
  Receipt Date: 20130904
  Transmission Date: 20140515
  Serious: Yes (Other)
  Sender: FDA-Public Use
  Company Number: CN-PFIZER INC-2013252776

PATIENT
  Age: 86 Year
  Sex: Female
  Weight: 55 kg

DRUGS (1)
  1. TAZOCIN [Suspect]
     Indication: PNEUMONIA
     Dosage: 4.5 G, 3X/DAY
     Route: 042
     Dates: start: 20120811, end: 20120811

REACTIONS (3)
  - Flushing [Recovering/Resolving]
  - Chest discomfort [Recovering/Resolving]
  - Respiratory distress [Recovering/Resolving]
